FAERS Safety Report 6243072-4 (Version None)
Quarter: 2009Q2

REPORT INFORMATION
  Report Type: 
  Country: None (occurrence: None)
  Receive Date: 20090622
  Receipt Date: 20090622
  Transmission Date: 20091009
  Serious: No
  Sender: FDA-Public Use
  Company Number: None

PATIENT
  Sex: Female
  Weight: 83.0083 kg

DRUGS (1)
  1. ZICAM COLD REMEDY 20-MECICAL SWABS ZICAM [Suspect]
     Indication: ANOSMIA
     Dosage: 2 A DAY MONTHLY INTRA-AMNIOTIC
     Route: 012
     Dates: start: 20080108, end: 20090620

REACTIONS (3)
  - AGEUSIA [None]
  - ANOSMIA [None]
  - MALAISE [None]
